FAERS Safety Report 8268082 (Version 2)
Quarter: 2013Q2

REPORT INFORMATION
  Report Type: Spontaneous
  Country: US (occurrence: None)
  Receive Date: 20111122
  Receipt Date: 20120426
  Transmission Date: 20140414
  Serious: Yes (Other)
  Sender: FDA-Public Use
  Company Number: PHHY2011US58873

PATIENT
  Age: 42 Year
  Sex: Female
  Weight: 75.7 kg

DRUGS (21)
  1. GILENYA [Suspect]
     Indication: RELAPSING-REMITTING MULTIPLE SCLEROSIS
     Route: 048
     Dates: start: 20110628
  2. REQUIP (ROPINIROLE HYDROCHLORIDE) [Concomitant]
  3. PHENERGAN (PROMETHAZINE HYDROCHLORIDE) [Concomitant]
  4. METHOCARBAMOL (METHOCARBAMOL) [Concomitant]
  5. TRAZODONE (TRAZODONE) [Concomitant]
  6. SINGULAIR (MONTELUKAST) 10MG [Concomitant]
  7. PRAZOSIN (PRAZOSIN) [Concomitant]
  8. DEXILANT [Concomitant]
  9. CYMBALTA (DULOXETINE HYDROCHLORIDE) [Concomitant]
  10. MEPERIDINE (MEPERIDINE) [Concomitant]
  11. PRAVASTATIN (PRAVASTATIN) [Concomitant]
  12. LORTAB (HYDROCODONE BITARTRATE, PARACETAMOL) [Concomitant]
  13. NAPROXEN (NAPROXEN) [Concomitant]
  14. ZOLPIDEM (ZOLPIDEM) [Concomitant]
  15. CA PLUS D [Concomitant]
  16. LAMOTRIGINE (LAMOTRIGINE) [Concomitant]
  17. DIAZEPAM (DIAZEPAM) [Concomitant]
  18. DETROL LA [Concomitant]
  19. MELOXICAM (MELOXICAM) [Concomitant]
  20. HYDROXYZINE (HYDROXYZINE) [Concomitant]
  21. DOXYCYCLINE (DOXYCYCLINE) [Concomitant]

REACTIONS (8)
  - Pain in extremity [None]
  - Urinary tract infection [None]
  - Multiple sclerosis relapse [None]
  - Calculus ureteric [None]
  - Urinary retention [None]
  - Confusional state [None]
  - Asthenia [None]
  - Hypoaesthesia [None]
